FAERS Safety Report 7194090-3 (Version None)
Quarter: 2010Q4

REPORT INFORMATION
  Report Type: 
  Country: None (occurrence: None)
  Receive Date: 20101223
  Receipt Date: 20101221
  Transmission Date: 20110411
  Serious: Yes (Hospitalization, Other)
  Sender: FDA-Public Use
  Company Number: US-US-EMD SERONO, INC.-7002906

PATIENT
  Sex: Female

DRUGS (5)
  1. REBIF [Suspect]
     Indication: MULTIPLE SCLEROSIS
     Route: 058
     Dates: start: 20060327, end: 20100126
  2. REBIF [Suspect]
     Route: 058
     Dates: start: 20100809
  3. TIZANIDINE HCL [Concomitant]
     Indication: MULTIPLE SCLEROSIS
     Route: 048
     Dates: start: 20070913
  4. GABAPENTIN [Concomitant]
     Indication: MULTIPLE SCLEROSIS
     Route: 048
     Dates: start: 20091217
  5. AMITRIPTYLINE HCL [Concomitant]
     Indication: MULTIPLE SCLEROSIS
     Route: 048
     Dates: start: 20100218

REACTIONS (12)
  - BLOOD COUNT ABNORMAL [None]
  - CONCUSSION [None]
  - CONVULSION [None]
  - DIZZINESS [None]
  - FALL [None]
  - FEELING ABNORMAL [None]
  - HYPERTENSION [None]
  - IRON DEFICIENCY [None]
  - MULTIPLE SCLEROSIS RELAPSE [None]
  - MUSCULAR WEAKNESS [None]
  - NAUSEA [None]
  - VOMITING [None]
